FAERS Safety Report 4945836-3 (Version None)
Quarter: 2006Q1

REPORT INFORMATION
  Report Type: 
  Country: None (occurrence: None)
  Receive Date: 20060316
  Receipt Date: 20060104
  Transmission Date: 20060701
  Serious: Yes (Hospitalization)
  Sender: FDA-Public Use
  Company Number: 2006PK00082

PATIENT
  Age: 19261 Day
  Sex: Female

DRUGS (2)
  1. NOLVADEX [Suspect]
     Dates: end: 20040101
  2. ARIMIDEX [Suspect]
     Indication: BREAST CANCER
     Route: 048
     Dates: start: 20050315

REACTIONS (2)
  - ECTROPION OF CERVIX [None]
  - ENDOMETRIAL HYPERPLASIA [None]
